FAERS Safety Report 6291653-4 (Version None)
Quarter: 2009Q3

REPORT INFORMATION
  Report Type: 
  Country: None (occurrence: None)
  Receive Date: 20090730
  Receipt Date: 20090721
  Transmission Date: 20100115
  Serious: Yes (Life-Threatening, Hospitalization)
  Sender: FDA-Public Use
  Company Number: ES-ELI_LILLY_AND_COMPANY-ES200907005083

PATIENT
  Age: 40 Year
  Sex: Male

DRUGS (7)
  1. FORTEO [Suspect]
     Indication: OSTEOPOROSIS
     Dosage: 20 UG, UNKNOWN
     Route: 058
     Dates: start: 20080701, end: 20090712
  2. ACTONEL [Concomitant]
     Dosage: UNK, UNKNOWN
     Route: 065
  3. KEPPRA [Concomitant]
     Dosage: UNK, UNKNOWN
     Route: 065
  4. CALCIO [Concomitant]
     Dosage: UNK, UNKNOWN
     Route: 065
  5. EPILANTIN [Concomitant]
     Dosage: UNK, UNKNOWN
     Route: 065
  6. PHENYTOIN SODIUM CAP [Concomitant]
     Dosage: UNK, UNKNOWN
     Route: 065
  7. DEPAKOTE [Concomitant]
     Dosage: 50 MG, UNKNOWN
     Route: 065

REACTIONS (4)
  - HALLUCINATION, VISUAL [None]
  - PYREXIA [None]
  - SEPSIS [None]
  - URINARY TRACT INFECTION [None]
